FAERS Safety Report 22011872 (Version 2)
Quarter: 2023Q2

REPORT INFORMATION
  Report Type: Spontaneous
  Country: US (occurrence: US)
  Receive Date: 20230220
  Receipt Date: 20230417
  Transmission Date: 20230721
  Serious: No
  Sender: FDA-Public Use
  Company Number: US-PFIZER INC-202300071934

PATIENT
  Age: 37 Year
  Sex: Male

DRUGS (5)
  1. PAXLOVID [Suspect]
     Active Substance: NIRMATRELVIR\RITONAVIR
     Indication: COVID-19 treatment
     Dosage: UNK
     Dates: start: 20230131, end: 20230204
  2. DIGESTIVE PROBIOTICS ADVANCED [Concomitant]
     Dosage: UNK
     Dates: start: 20230101, end: 20230216
  3. MUCINEX [Concomitant]
     Active Substance: GUAIFENESIN
     Dosage: UNK
     Dates: start: 20230129, end: 20230205
  4. DAYQUIL AND NYQUIL SEVERE+ VICKS VAPOCOOL COLD AND FLU [Concomitant]
     Dosage: UNK
     Dates: start: 20230128, end: 20230205
  5. PSEUDOEPHEDRINE [Concomitant]
     Active Substance: PSEUDOEPHEDRINE
     Dosage: UNK
     Dates: start: 20230131, end: 20230205

REACTIONS (2)
  - COVID-19 [Recovering/Resolving]
  - Disease recurrence [Recovering/Resolving]

NARRATIVE: CASE EVENT DATE: 20230207
